FAERS Safety Report 5800822-6 (Version None)
Quarter: 2008Q3

REPORT INFORMATION
  Report Type: 
  Country: None (occurrence: None)
  Receive Date: 20080701
  Receipt Date: 20080627
  Transmission Date: 20090109
  Serious: Yes (Life-Threatening)
  Sender: FDA-Public Use
  Company Number: 2007SP024646

PATIENT
  Age: 77 Year
  Sex: Female
  Weight: 43 kg

DRUGS (7)
  1. TEMODAL [Suspect]
     Indication: MALIGNANT GLIOMA
     Dosage: 100 MG; QD; PO
     Route: 048
     Dates: start: 20071011, end: 20071101
  2. FAMOTIDINE [Suspect]
     Indication: GASTRIC ULCER
     Dosage: 2 DF; ; PO
     Route: 048
     Dates: start: 20070928, end: 20071104
  3. VALPROATE SODIUM [Suspect]
     Indication: EPILEPSY
     Dosage: 2 DF; ; PO
     Route: 048
     Dates: start: 20070928, end: 20071104
  4. NAUZELIN (DOMPERIDONE) [Suspect]
     Indication: GASTRITIS
     Dosage: 1 DF; ; PO
     Route: 048
     Dates: start: 20071012, end: 20071107
  5. BACTRIM [Suspect]
     Indication: PROPHYLAXIS
     Dosage: 4 DF; ; PO
     Route: 048
     Dates: start: 20071013, end: 20071107
  6. SELBEX (TEPRENONE) [Suspect]
     Indication: GASTRIC ULCER
     Dosage: 150 MG; ; PO
     Route: 048
     Dates: start: 20071105, end: 20071107
  7. ZONISAMIDE [Suspect]
     Indication: EPILEPSY
     Dosage: 200 MG; ; PO
     Route: 048
     Dates: start: 20071105, end: 20071107

REACTIONS (9)
  - DRUG ERUPTION [None]
  - EPILEPSY [None]
  - FULL BLOOD COUNT DECREASED [None]
  - GASTRIC ULCER [None]
  - GASTRITIS [None]
  - HEPATIC FUNCTION ABNORMAL [None]
  - HYPERTHERMIA [None]
  - RASH [None]
  - SKIN TEST POSITIVE [None]
